FAERS Safety Report 4894818-9 (Version None)
Quarter: 2006Q1

REPORT INFORMATION
  Report Type: 
  Country: None (occurrence: None)
  Receive Date: 20060130
  Receipt Date: 20060124
  Transmission Date: 20060701
  Serious: Yes (Death, Life-Threatening)
  Sender: FDA-Public Use
  Company Number: JP-AVENTIS-200610238JP

PATIENT
  Age: 56 Year
  Sex: Female
  Weight: 65.4 kg

DRUGS (13)
  1. ARAVA [Suspect]
     Indication: ARTHRALGIA
     Route: 048
     Dates: start: 20031211, end: 20031213
  2. ARAVA [Suspect]
     Route: 048
     Dates: start: 20031214
  3. PREDONINE [Concomitant]
     Indication: ARTHRALGIA
     Route: 048
     Dates: end: 20040107
  4. PREDONINE [Concomitant]
     Route: 048
     Dates: start: 20040108, end: 20040331
  5. PREDONINE [Concomitant]
     Route: 048
     Dates: start: 20040401
  6. LOXONIN [Concomitant]
     Indication: ARTHRALGIA
     Route: 048
  7. SELBEX [Concomitant]
     Indication: GASTRIC DISORDER
     Route: 048
  8. SELBEX [Concomitant]
     Indication: PROPHYLAXIS
     Route: 048
  9. MAGNESIUM OXIDE [Concomitant]
     Indication: GASTRIC DISORDER
     Route: 048
     Dates: end: 20031224
  10. MAGNESIUM OXIDE [Concomitant]
     Indication: PROPHYLAXIS
     Route: 048
     Dates: end: 20031224
  11. MAGNESIUM OXIDE [Concomitant]
     Route: 048
     Dates: start: 20040401
  12. ADOFEED [Concomitant]
     Indication: ARTHRALGIA
     Dosage: DOSE: 24/14DAY; DOSE UNIT: UNITS
     Dates: end: 20031224
  13. KETOPROFEN [Concomitant]
     Indication: ARTHRALGIA
     Dosage: DOSE: 28/14DAY; DOSE UNIT: UNITS
     Dates: end: 20031224

REACTIONS (5)
  - APPENDICITIS PERFORATED [None]
  - DEPRESSED LEVEL OF CONSCIOUSNESS [None]
  - MULTI-ORGAN FAILURE [None]
  - PERITONITIS [None]
  - RED BLOOD CELL COUNT DECREASED [None]
